FAERS Safety Report 5493275-1 (Version None)
Quarter: 2007Q4

REPORT INFORMATION
  Report Type: 
  Country: None (occurrence: None)
  Receive Date: 20071022
  Receipt Date: 20071022
  Transmission Date: 20080405
  Serious: Yes (Other)
  Sender: FDA-Public Use
  Company Number: None

PATIENT
  Age: 54 Year
  Sex: Female

DRUGS (5)
  1. AUGMENTIN '125' [Suspect]
     Dates: start: 20070110, end: 20070120
  2. METOPROLOL [Concomitant]
  3. ESTRODIOL [Concomitant]
  4. IBUPROFEN [Concomitant]
  5. NYQUIL [Concomitant]

REACTIONS (6)
  - HEPATIC NECROSIS [None]
  - HEPATITIS [None]
  - HEPATITIS ACUTE [None]
  - HEPATOCELLULAR DAMAGE [None]
  - HEPATOTOXICITY [None]
  - LIVER INJURY [None]
